FAERS Safety Report 9608631 (Version 2)
Quarter: 2013Q4

REPORT INFORMATION
  Report Type: Spontaneous
  Country: JP (occurrence: JP)
  Receive Date: 20131009
  Receipt Date: 20131028
  Transmission Date: 20140711
  Serious: Yes (Hospitalization)
  Sender: FDA-Public Use
  Company Number: JP-PFIZER INC-2013286773

PATIENT
  Age: 40 Year
  Sex: Female

DRUGS (2)
  1. GABAPEN [Suspect]
     Indication: DYSPHORIA
     Dosage: 600 MG, DAILY
     Route: 048
  2. PAXIL [Concomitant]
     Indication: DEPRESSION
     Dosage: 30 MG, DAILY
     Route: 048
     Dates: start: 201304

REACTIONS (2)
  - Off label use [Unknown]
  - Stress [Unknown]
